FAERS Safety Report 13154006 (Version 1)
Quarter: 2017Q1

REPORT INFORMATION
  Report Type: Spontaneous
  Country: RU (occurrence: RU)
  Receive Date: 20170126
  Receipt Date: 20170126
  Transmission Date: 20170428
  Serious: Yes (Other)
  Sender: FDA-Public Use
  Company Number: RU-BAYER-2017-010511

PATIENT
  Sex: Female

DRUGS (1)
  1. MIRENA [Suspect]
     Active Substance: LEVONORGESTREL
     Dosage: 20 MCG/24HR, CONT
     Route: 015
     Dates: start: 201612

REACTIONS (6)
  - Blood bilirubin increased [None]
  - Hepatic steatosis [None]
  - Back pain [None]
  - Pancreatitis chronic [None]
  - Hepatomegaly [None]
  - Headache [None]

NARRATIVE: CASE EVENT DATE: 201612
